FAERS Safety Report 23585036 (Version 2)
Quarter: 2024Q1

REPORT INFORMATION
  Report Type: Spontaneous
  Country: PY (occurrence: PY)
  Receive Date: 20240301
  Receipt Date: 20240327
  Transmission Date: 20240409
  Serious: Yes (Death, Hospitalization)
  Sender: FDA-Public Use
  Company Number: PY-ROCHE-3511508

PATIENT
  Age: 76 Year
  Sex: Female

DRUGS (1)
  1. MIRCERA [Suspect]
     Active Substance: METHOXY POLYETHYLENE GLYCOL-EPOETIN BETA
     Indication: Nephrogenic anaemia
     Dosage: DOSE: 100 MCG (0.3 ML)
     Route: 058
     Dates: start: 20231128

REACTIONS (11)
  - Death [Fatal]
  - Peripheral swelling [Recovering/Resolving]
  - Pulmonary oedema [Recovering/Resolving]
  - Cardiac disorder [Recovering/Resolving]
  - Myocardial oedema [Recovering/Resolving]
  - Pulmonary oedema [Recovering/Resolving]
  - Anuria [Recovering/Resolving]
  - Dyspnoea [Recovering/Resolving]
  - Endotracheal intubation [Recovering/Resolving]
  - Cardiac failure [Recovering/Resolving]
  - Generalised oedema [Unknown]

NARRATIVE: CASE EVENT DATE: 20240131
